FAERS Safety Report 5032517-3 (Version None)
Quarter: 2006Q2

REPORT INFORMATION
  Report Type: 
  Country: None (occurrence: None)
  Receive Date: 20060622
  Receipt Date: 20060615
  Transmission Date: 20061013
  Serious: Yes (Other)
  Sender: FDA-Public Use
  Company Number: AU-BRISTOL-MYERS SQUIBB COMPANY-13412978

PATIENT
  Age: 37 Year
  Sex: Female

DRUGS (1)
  1. TEQUIN [Suspect]
     Indication: OSTEOMYELITIS
     Route: 048
     Dates: start: 20010518, end: 20010518

REACTIONS (4)
  - BRONCHOSPASM [None]
  - DYSPHONIA [None]
  - PRURITUS [None]
  - THROAT TIGHTNESS [None]
